FAERS Safety Report 11112449 (Version 1)
Quarter: 2015Q2

REPORT INFORMATION
  Report Type: Spontaneous
  Country: US (occurrence: US)
  Receive Date: 20150514
  Receipt Date: 20150514
  Transmission Date: 20150821
  Serious: No
  Sender: FDA-Public Use
  Company Number: US-BAYER-2015-222459

PATIENT
  Sex: Male

DRUGS (1)
  1. STIVARGA [Suspect]
     Active Substance: REGORAFENIB

REACTIONS (1)
  - Palmar-plantar erythrodysaesthesia syndrome [None]
